FAERS Safety Report 25430934 (Version 1)
Quarter: 2025Q2

REPORT INFORMATION
  Report Type: Spontaneous
  Country: US (occurrence: US)
  Receive Date: 20250612
  Receipt Date: 20250612
  Transmission Date: 20250716
  Serious: No
  Sender: ELI LILLY AND COMPANY
  Company Number: US-ELI_LILLY_AND_COMPANY-US202506000011

PATIENT
  Age: 40 Year

DRUGS (24)
  1. MOUNJARO [Suspect]
     Active Substance: TIRZEPATIDE
     Indication: Hyperinsulinaemia
     Route: 065
     Dates: start: 202202
  2. MOUNJARO [Suspect]
     Active Substance: TIRZEPATIDE
     Indication: Hyperinsulinaemia
     Route: 065
     Dates: start: 202202
  3. MOUNJARO [Suspect]
     Active Substance: TIRZEPATIDE
     Indication: Hyperinsulinaemia
     Route: 065
     Dates: start: 202202
  4. MOUNJARO [Suspect]
     Active Substance: TIRZEPATIDE
     Indication: Hyperinsulinaemia
     Route: 065
     Dates: start: 202202
  5. MOUNJARO [Suspect]
     Active Substance: TIRZEPATIDE
     Indication: Polycystic ovarian syndrome
  6. MOUNJARO [Suspect]
     Active Substance: TIRZEPATIDE
     Indication: Polycystic ovarian syndrome
  7. MOUNJARO [Suspect]
     Active Substance: TIRZEPATIDE
     Indication: Polycystic ovarian syndrome
  8. MOUNJARO [Suspect]
     Active Substance: TIRZEPATIDE
     Indication: Polycystic ovarian syndrome
  9. MOUNJARO [Suspect]
     Active Substance: TIRZEPATIDE
     Indication: Hyperinsulinaemia
     Route: 065
  10. MOUNJARO [Suspect]
     Active Substance: TIRZEPATIDE
     Indication: Hyperinsulinaemia
     Route: 065
  11. MOUNJARO [Suspect]
     Active Substance: TIRZEPATIDE
     Indication: Hyperinsulinaemia
     Route: 065
  12. MOUNJARO [Suspect]
     Active Substance: TIRZEPATIDE
     Indication: Hyperinsulinaemia
     Route: 065
  13. MOUNJARO [Suspect]
     Active Substance: TIRZEPATIDE
     Indication: Polycystic ovarian syndrome
     Route: 065
     Dates: start: 202502, end: 202505
  14. MOUNJARO [Suspect]
     Active Substance: TIRZEPATIDE
     Indication: Polycystic ovarian syndrome
     Route: 065
     Dates: start: 202502, end: 202505
  15. MOUNJARO [Suspect]
     Active Substance: TIRZEPATIDE
     Indication: Polycystic ovarian syndrome
     Route: 065
     Dates: start: 202502, end: 202505
  16. MOUNJARO [Suspect]
     Active Substance: TIRZEPATIDE
     Indication: Polycystic ovarian syndrome
     Route: 065
     Dates: start: 202502, end: 202505
  17. MOUNJARO [Suspect]
     Active Substance: TIRZEPATIDE
     Indication: Hyperinsulinaemia
     Route: 065
  18. MOUNJARO [Suspect]
     Active Substance: TIRZEPATIDE
     Indication: Hyperinsulinaemia
     Route: 065
  19. MOUNJARO [Suspect]
     Active Substance: TIRZEPATIDE
     Indication: Hyperinsulinaemia
     Route: 065
  20. MOUNJARO [Suspect]
     Active Substance: TIRZEPATIDE
     Indication: Hyperinsulinaemia
     Route: 065
  21. MOUNJARO [Suspect]
     Active Substance: TIRZEPATIDE
     Indication: Polycystic ovarian syndrome
  22. MOUNJARO [Suspect]
     Active Substance: TIRZEPATIDE
     Indication: Polycystic ovarian syndrome
  23. MOUNJARO [Suspect]
     Active Substance: TIRZEPATIDE
     Indication: Polycystic ovarian syndrome
  24. MOUNJARO [Suspect]
     Active Substance: TIRZEPATIDE
     Indication: Polycystic ovarian syndrome

REACTIONS (8)
  - Off label use [Unknown]
  - Incorrect dose administered [Unknown]
  - Blood testosterone free increased [Unknown]
  - Blood insulin increased [Unknown]
  - Injection site pain [Unknown]
  - Injection site haemorrhage [Unknown]
  - Nausea [Unknown]
  - Fatigue [Unknown]

NARRATIVE: CASE EVENT DATE: 20250501
